FAERS Safety Report 9008255 (Version 2)
Quarter: 2013Q1

REPORT INFORMATION
  Report Type: Spontaneous
  Country: US (occurrence: US)
  Receive Date: 20130111
  Receipt Date: 20130213
  Transmission Date: 20140127
  Serious: Yes (Hospitalization, Other)
  Sender: FDA-Public Use
  Company Number: US-GENZYME-CAMP-1002669

PATIENT
  Age: 61 None
  Sex: Female
  Weight: 83.6 kg

DRUGS (2)
  1. CAMPATH [Suspect]
     Indication: CHRONIC LYMPHOCYTIC LEUKAEMIA
     Dosage: UNK, 3XW
     Route: 065
     Dates: start: 20090701, end: 200908
  2. LENALIDOMIDE [Concomitant]
     Indication: PRODUCT USED FOR UNKNOWN INDICATION
     Dosage: 2.5 MG, QD
     Route: 048
     Dates: start: 201212

REACTIONS (2)
  - Chronic lymphocytic leukaemia recurrent [Unknown]
  - Pneumonia [Recovered/Resolved]
